FAERS Safety Report 12738726 (Version 1)
Quarter: 2016Q3

REPORT INFORMATION
  Report Type: Spontaneous
  Country: JP (occurrence: JP)
  Receive Date: 20160912
  Receipt Date: 20160912
  Transmission Date: 20161109
  Serious: Yes (Disabling, Other)
  Sender: FDA-Public Use
  Company Number: JP-TEVA-2016-JP-001854J

PATIENT
  Sex: Female

DRUGS (3)
  1. DEXART [Suspect]
     Active Substance: DEXAMETHASONE SODIUM PHOSPHATE
     Indication: PREMEDICATION
     Dosage: 3.3 MILLIGRAM DAILY;
     Route: 041
     Dates: start: 20160810, end: 20160810
  2. CISPLATIN. [Concomitant]
     Active Substance: CISPLATIN
     Indication: BREAST CANCER
     Route: 041
     Dates: start: 20160810, end: 20160810
  3. RANITIDINE INJECTION 100MG ^TAIYO^ [Suspect]
     Active Substance: RANITIDINE
     Indication: PROPHYLAXIS OF NAUSEA AND VOMITING
     Dosage: 100 MILLIGRAM DAILY;
     Route: 041
     Dates: start: 20160810, end: 20160810

REACTIONS (2)
  - Dysstasia [Recovered/Resolved]
  - Spinal pain [Recovered/Resolved]

NARRATIVE: CASE EVENT DATE: 20160810
